FAERS Safety Report 5426023-1 (Version None)
Quarter: 2007Q3

REPORT INFORMATION
  Report Type: 
  Country: None (occurrence: None)
  Receive Date: 20070824
  Receipt Date: 20070824
  Transmission Date: 20080115
  Serious: Yes (Other)
  Sender: FDA-Public Use
  Company Number: None

PATIENT
  Sex: Female
  Weight: 63.5036 kg

DRUGS (8)
  1. ASTELIN [Suspect]
     Indication: CHRONIC SINUSITIS
     Dosage: 2 SPRAYS EACH NOSTRIL TWICE A DAY NOSE
     Route: 045
     Dates: start: 20060401, end: 20070701
  2. ASTELIN [Suspect]
     Indication: HYPERSENSITIVITY
     Dosage: 2 SPRAYS EACH NOSTRIL TWICE A DAY NOSE
     Route: 045
     Dates: start: 20060401, end: 20070701
  3. SYNTHROID [Concomitant]
  4. VASAFEM [Concomitant]
  5. ALBUTEROL [Concomitant]
  6. ATROVENT [Concomitant]
  7. NASONEX [Concomitant]
  8. ROXICET [Concomitant]

REACTIONS (13)
  - ARTHRALGIA [None]
  - CONVULSION [None]
  - GINGIVAL PAIN [None]
  - INSOMNIA [None]
  - JAW DISORDER [None]
  - NAUSEA [None]
  - PAIN [None]
  - SINUS HEADACHE [None]
  - SWELLING [None]
  - TONGUE BITING [None]
  - TOOTH DISORDER [None]
  - TOOTH INJURY [None]
  - URINE OUTPUT DECREASED [None]
